FAERS Safety Report 5801804-0 (Version None)
Quarter: 2008Q3

REPORT INFORMATION
  Report Type: 
  Country: None (occurrence: None)
  Receive Date: 20080707
  Receipt Date: 20080630
  Transmission Date: 20090109
  Serious: Yes (Other)
  Sender: FDA-Public Use
  Company Number: US-KINGPHARMUSA00001-K200800757

PATIENT
  Age: 52 Year
  Sex: Male

DRUGS (3)
  1. PROCANBID [Suspect]
  2. AMIODARONE HCL [Suspect]
     Indication: VENTRICULAR TACHYCARDIA
     Route: 042
  3. MANNITOL [Concomitant]
     Indication: INTRACRANIAL PRESSURE INCREASED

REACTIONS (1)
  - VENTRICULAR TACHYCARDIA [None]
